FAERS Safety Report 17882990 (Version 1)
Quarter: 2020Q2

REPORT INFORMATION
  Report Type: Spontaneous
  Country: US (occurrence: US)
  Receive Date: 20200611
  Receipt Date: 20200611
  Transmission Date: 20200714
  Serious: No
  Sender: FDA-Public Use
  Company Number: US-BRISTOL-MYERS SQUIBB COMPANY-BMS-2020-045158

PATIENT
  Sex: Male

DRUGS (1)
  1. ELIQUIS [Suspect]
     Active Substance: APIXABAN
     Indication: PRODUCT USED FOR UNKNOWN INDICATION
     Dosage: 2.5 MG AND TAKES HALF A 5 MG PILL IN THE MORNING AND THE OTHER HALF  AT NIGHT
     Route: 065

REACTIONS (3)
  - Fatigue [Unknown]
  - Intentional product misuse [Unknown]
  - Product dose omission [Unknown]
